FAERS Safety Report 13544687 (Version 10)
Quarter: 2020Q2

REPORT INFORMATION
  Report Type: Report from Study
  Country: US (occurrence: US)
  Receive Date: 20170515
  Receipt Date: 20200626
  Transmission Date: 20200713
  Serious: Yes (Other)
  Sender: FDA-Public Use
  Company Number: US-ASTELLAS-2017US003224

PATIENT
  Age: 78 Year
  Sex: Male

DRUGS (9)
  1. ENZALUTAMIDE [Suspect]
     Active Substance: ENZALUTAMIDE
     Route: 048
     Dates: start: 2019
  2. ENZALUTAMIDE [Suspect]
     Active Substance: ENZALUTAMIDE
     Route: 048
  3. ENZALUTAMIDE [Suspect]
     Active Substance: ENZALUTAMIDE
     Route: 048
  4. WARFARIN [Concomitant]
     Active Substance: WARFARIN
     Indication: CARDIAC DISORDER
     Route: 048
  5. ENZALUTAMIDE [Suspect]
     Active Substance: ENZALUTAMIDE
     Indication: PROSTATE CANCER
     Route: 048
     Dates: start: 20171213
  6. ENZALUTAMIDE [Suspect]
     Active Substance: ENZALUTAMIDE
     Route: 048
     Dates: start: 20180112
  7. WARFARIN [Concomitant]
     Active Substance: WARFARIN
     Route: 048
  8. ENZALUTAMIDE [Suspect]
     Active Substance: ENZALUTAMIDE
     Indication: HORMONE-REFRACTORY PROSTATE CANCER
     Route: 048
     Dates: start: 20161230
  9. WARFARIN [Concomitant]
     Active Substance: WARFARIN
     Route: 048

REACTIONS (12)
  - International normalised ratio decreased [Unknown]
  - International normalised ratio abnormal [Unknown]
  - Constipation [Unknown]
  - Abdominal pain upper [Recovering/Resolving]
  - Epigastric discomfort [Unknown]
  - Asthenia [Unknown]
  - Blood viscosity increased [Unknown]
  - Dyspnoea [Unknown]
  - Loss of consciousness [Unknown]
  - Haematochezia [Unknown]
  - Abdominal discomfort [Recovering/Resolving]
  - Nausea [Not Recovered/Not Resolved]

NARRATIVE: CASE EVENT DATE: 20170117
